FAERS Safety Report 18682799 (Version 2)
Quarter: 2021Q1

REPORT INFORMATION
  Report Type: Spontaneous
  Country: DE (occurrence: DE)
  Receive Date: 20201230
  Receipt Date: 20210112
  Transmission Date: 20210419
  Serious: Yes (Other)
  Sender: FDA-Public Use
  Company Number: DE-LUPIN PHARMACEUTICALS INC.-2020-07976

PATIENT
  Age: 40 Year
  Sex: Female

DRUGS (14)
  1. CLONAZEPAM. [Suspect]
     Active Substance: CLONAZEPAM
     Indication: MOVEMENT DISORDER
     Dosage: 200 MILLIGRAM, QD
     Route: 048
  2. BACLOFEN. [Suspect]
     Active Substance: BACLOFEN
     Indication: MOVEMENT DISORDER
     Dosage: 120 MILLIGRAM, QD
     Route: 048
  3. TIAPRIDE [Concomitant]
     Active Substance: TIAPRIDE
     Indication: MOVEMENT DISORDER
     Dosage: 100 MILLIGRAM, QD
     Route: 048
  4. CLONIDINE. [Suspect]
     Active Substance: CLONIDINE
     Indication: MOVEMENT DISORDER
     Dosage: 600 MICROGRAM, QD
     Route: 048
  5. OLANZAPINE. [Suspect]
     Active Substance: OLANZAPINE
     Indication: MOVEMENT DISORDER
     Dosage: 30 MILLIGRAM, QD
     Route: 048
  6. TRIHEXYPHENIDYL [Suspect]
     Active Substance: TRIHEXYPHENIDYL
     Indication: MOVEMENT DISORDER
     Dosage: 120 MILLIGRAM, QD
     Route: 048
  7. SUFENTANIL [Concomitant]
     Active Substance: SUFENTANIL
     Indication: MOVEMENT DISORDER
     Dosage: 0.3 MICROGRAM/KILOGRAM, 1 HOURS
     Route: 042
  8. PROPOFOL. [Concomitant]
     Active Substance: PROPOFOL
     Indication: MOVEMENT DISORDER
     Dosage: 5.45 MILLIGRAM/KILOGRAM, 1 HOUR
     Route: 042
  9. HALOPERIDOL. [Suspect]
     Active Substance: HALOPERIDOL
     Indication: MOVEMENT DISORDER
     Dosage: 3 MILLIGRAM, QD
     Route: 048
  10. LEVOMEPROMAZINE [Concomitant]
     Active Substance: LEVOMEPROMAZINE
     Indication: MOVEMENT DISORDER
     Dosage: UNK
     Route: 065
  11. FENTANYL. [Suspect]
     Active Substance: FENTANYL
     Indication: MOVEMENT DISORDER
     Dosage: 100 MICROGRAM, EVERY 3 DAY (PLASTER)
     Route: 065
  12. MIDAZOLAM. [Concomitant]
     Active Substance: MIDAZOLAM
     Indication: MOVEMENT DISORDER
     Dosage: 0.23 MILLIGRAM/KILOGRAM, 1 HOURS
     Route: 042
  13. TETRABENAZINE. [Suspect]
     Active Substance: TETRABENAZINE
     Indication: MOVEMENT DISORDER
     Dosage: 200 MILLIGRAM, QD
     Route: 048
  14. DEXMEDETOMIDINE. [Concomitant]
     Active Substance: DEXMEDETOMIDINE
     Indication: MOVEMENT DISORDER
     Dosage: 1.6 MICROGRAM/KILOGRAM, 1 HOUR
     Route: 048

REACTIONS (3)
  - Dystonia [Recovered/Resolved]
  - Off label use [Unknown]
  - Therapeutic product effect incomplete [Unknown]
